FAERS Safety Report 4570191-0 (Version None)
Quarter: 2005Q1

REPORT INFORMATION
  Report Type: 
  Country: None (occurrence: None)
  Receive Date: 20050204
  Receipt Date: 20050126
  Transmission Date: 20050727
  Serious: Yes (Hospitalization)
  Sender: FDA-Public Use
  Company Number: DE-BRISTOL-MYERS SQUIBB COMPANY-12839528

PATIENT
  Age: 69 Year
  Sex: Female
  Weight: 85 kg

DRUGS (10)
  1. TAXOL [Suspect]
     Indication: OVARIAN CANCER
     Route: 042
     Dates: start: 20050105, end: 20050105
  2. CARBOPLATIN [Suspect]
     Indication: OVARIAN CANCER
     Route: 042
     Dates: start: 20050105, end: 20050105
  3. CARBIMAZOLE [Concomitant]
  4. TRANXENE [Concomitant]
  5. AMITRIPTYLINE [Concomitant]
  6. TRIMIPRAMINE [Concomitant]
  7. DEXAMETHASONE [Concomitant]
     Indication: PREMEDICATION
     Dates: start: 20050105, end: 20050105
  8. TROPISETRON [Concomitant]
     Indication: PREMEDICATION
     Dates: start: 20050105, end: 20050105
  9. CLEMASTINE [Concomitant]
     Indication: PREMEDICATION
     Dates: start: 20050105, end: 20050105
  10. RANITIDINE [Concomitant]
     Indication: PREMEDICATION
     Dates: start: 20050105, end: 20050105

REACTIONS (1)
  - DEPRESSED LEVEL OF CONSCIOUSNESS [None]
